FAERS Safety Report 22252930 (Version 1)
Quarter: 2023Q2

REPORT INFORMATION
  Report Type: Spontaneous
  Country: US (occurrence: US)
  Receive Date: 20230426
  Receipt Date: 20230426
  Transmission Date: 20230721
  Serious: Yes (Other)
  Sender: FDA-Public Use
  Company Number: US-SUN PHARMACEUTICAL INDUSTRIES LTD-2023R1-385365

PATIENT
  Age: 23 Year
  Sex: Female

DRUGS (1)
  1. METOPROLOL [Suspect]
     Active Substance: METOPROLOL
     Indication: Vein of Galen aneurysmal malformation
     Dosage: 25 MILLIGRAM, DAILY
     Route: 065

REACTIONS (3)
  - Therapeutic response decreased [Unknown]
  - Exposure during pregnancy [Unknown]
  - Live birth [Unknown]
